FAERS Safety Report 12673827 (Version 1)
Quarter: 2016Q3

REPORT INFORMATION
  Report Type: Spontaneous
  Country: US (occurrence: US)
  Receive Date: 20160822
  Receipt Date: 20160822
  Transmission Date: 20161109
  Serious: Yes (Other)
  Sender: FDA-Public Use
  Company Number: US-BAYER-2016-157466

PATIENT
  Age: 17 Year
  Sex: Male

DRUGS (3)
  1. STIVARGA [Suspect]
     Active Substance: REGORAFENIB
     Indication: GASTROINTESTINAL STROMAL TUMOUR
  2. SUNITINIB [Suspect]
     Active Substance: SUNITINIB
     Indication: GASTROINTESTINAL STROMAL TUMOUR
     Dosage: 50 MG DAILY X 4 WEEKS, 2 WEEKS OFF
  3. PAZOPANIB [Concomitant]
     Active Substance: PAZOPANIB

REACTIONS (7)
  - Tumour haemorrhage [None]
  - Off label use [None]
  - Vomiting [None]
  - Nausea [None]
  - Thrombocytopenia [None]
  - Fatigue [None]
  - Pain [None]
